FAERS Safety Report 9699064 (Version 2)
Quarter: 2013Q4

REPORT INFORMATION
  Report Type: Spontaneous
  Country: JP (occurrence: JP)
  Receive Date: 20131120
  Receipt Date: 20131128
  Transmission Date: 20140711
  Serious: Yes (Hospitalization)
  Sender: FDA-Public Use
  Company Number: JP-ASTRAZENECA-2013SE84155

PATIENT
  Age: 70 Year
  Sex: 0

DRUGS (1)
  1. CARBOCAIN [Suspect]
     Indication: NERVE BLOCK
     Route: 053

REACTIONS (2)
  - Muscular weakness [Recovering/Resolving]
  - Muscular weakness [Recovering/Resolving]
